FAERS Safety Report 8425657 (Version 3)
Quarter: 2012Q4

REPORT INFORMATION
  Report Type: 
  Country: JP (occurrence: JP)
  Receive Date: 20120224
  Receipt Date: 20120920
  Transmission Date: 20130627
  Serious: Yes (Hospitalization, Other)
  Sender: FDA-Public Use
  Company Number: JP-PFIZER INC-2011240056

PATIENT
  Age: 61 Year
  Sex: Female
  Weight: 52.1 kg

DRUGS (3)
  1. CELECOX [Suspect]
     Indication: BACK PAIN
     Dosage: 100 mg, 2x/day
     Route: 048
     Dates: start: 20110927, end: 20110927
  2. SIMVASTATIN [Concomitant]
     Indication: DYSLIPIDAEMIA
     Dosage: UNK
     Dates: start: 20080215
  3. TRIMEBUTINE MALEATE [Concomitant]
     Indication: IRRITABLE BOWEL SYNDROME
     Dosage: UNK
     Dates: start: 20110405

REACTIONS (3)
  - Anaphylactic reaction [Recovered/Resolved]
  - Drug hypersensitivity [Recovered/Resolved]
  - Blood glucose increased [Recovered/Resolved]
